FAERS Safety Report 17995229 (Version 2)
Quarter: 2020Q3

REPORT INFORMATION
  Report Type: Spontaneous
  Country: ES (occurrence: ES)
  Receive Date: 20200708
  Receipt Date: 20200713
  Transmission Date: 20201103
  Serious: Yes (Other)
  Sender: FDA-Public Use
  Company Number: ES-PFIZER INC-2020258865

PATIENT
  Age: 66 Year
  Sex: Male

DRUGS (5)
  1. ZINPLAVA [Suspect]
     Active Substance: BEZLOTOXUMAB
     Indication: CLOSTRIDIUM DIFFICILE INFECTION
     Dosage: UNK
     Route: 042
     Dates: start: 2019
  2. METRONIDAZOLE. [Suspect]
     Active Substance: METRONIDAZOLE
     Indication: CLOSTRIDIUM DIFFICILE INFECTION
     Dosage: UNK
     Route: 042
  3. VANCOMYCIN HCL [Suspect]
     Active Substance: VANCOMYCIN HYDROCHLORIDE
     Indication: CLOSTRIDIUM DIFFICILE INFECTION
     Dosage: UNK
     Dates: start: 2019
  4. ADALIMUMAB [Concomitant]
     Active Substance: ADALIMUMAB
     Indication: NEOPLASM
     Dosage: UNK
  5. FIDAXOMICIN [Suspect]
     Active Substance: FIDAXOMICIN
     Indication: CLOSTRIDIUM DIFFICILE INFECTION
     Dosage: UNK
     Route: 048

REACTIONS (2)
  - Arthritis [Unknown]
  - Clostridium difficile infection [Recovered/Resolved]

NARRATIVE: CASE EVENT DATE: 2019
